FAERS Safety Report 12298049 (Version 2)
Quarter: 2016Q3

REPORT INFORMATION
  Report Type: Report from Study
  Country: US (occurrence: US)
  Receive Date: 20160422
  Receipt Date: 20160725
  Transmission Date: 20161109
  Serious: No
  Sender: FDA-Public Use
  Company Number: US-ASTRAZENECA-2016SE39104

PATIENT
  Age: 27588 Day
  Sex: Male
  Weight: 55.3 kg

DRUGS (2)
  1. CRESTOR [Suspect]
     Active Substance: ROSUVASTATIN CALCIUM
     Indication: BLOOD CHOLESTEROL
     Route: 048
  2. ZETIA [Concomitant]
     Active Substance: EZETIMIBE
     Indication: BLOOD CHOLESTEROL
     Route: 048

REACTIONS (5)
  - Ulcer [Unknown]
  - Weight decreased [Unknown]
  - Stent-graft endoleak [Unknown]
  - Aneurysm [Unknown]
  - Product use issue [Unknown]

NARRATIVE: CASE EVENT DATE: 20110602
